FAERS Safety Report 23617921 (Version 1)
Quarter: 2024Q1

REPORT INFORMATION
  Report Type: Spontaneous
  Country: FR (occurrence: FR)
  Receive Date: 20240311
  Receipt Date: 20240311
  Transmission Date: 20240410
  Serious: Yes (Hospitalization, Other)
  Sender: FDA-Public Use
  Company Number: FR-SA-SAC20240308000851

PATIENT
  Age: 71 Year
  Sex: Male
  Weight: 52 kg

DRUGS (20)
  1. LENOGRASTIM [Suspect]
     Active Substance: LENOGRASTIM
     Indication: Neutropenia
     Dosage: UNK, 34 MUL/JOUR
     Route: 058
     Dates: start: 20240216, end: 20240217
  2. OXALIPLATIN [Suspect]
     Active Substance: OXALIPLATIN
     Indication: Adenocarcinoma gastric
     Dosage: C1:110 MG OVER 2H
     Route: 042
     Dates: start: 20230816, end: 20230816
  3. OXALIPLATIN [Suspect]
     Active Substance: OXALIPLATIN
     Dosage: 106 MG OVER 2 H
     Route: 042
     Dates: start: 20231018, end: 20231018
  4. OXALIPLATIN [Suspect]
     Active Substance: OXALIPLATIN
     Dosage: C2 : 109 MG OVER 2H
     Route: 042
     Dates: start: 20231004, end: 20231004
  5. OXALIPLATIN [Suspect]
     Active Substance: OXALIPLATIN
     Dosage: 106 MG OVER 2 H
     Route: 042
     Dates: start: 20240125, end: 20240125
  6. OXALIPLATIN [Suspect]
     Active Substance: OXALIPLATIN
     Dosage: 109 MG OVER 2H
     Route: 042
     Dates: start: 20230920, end: 20230920
  7. OXALIPLATIN [Suspect]
     Active Substance: OXALIPLATIN
     Dosage: 110 MG OVER 2H
     Route: 042
     Dates: start: 20240219, end: 20240219
  8. FLUOROURACIL [Suspect]
     Active Substance: FLUOROURACIL
     Indication: Adenocarcinoma gastric
     Dosage: C2 : 2700 MG OVER 46H
     Dates: start: 20231004, end: 20231004
  9. FLUOROURACIL [Suspect]
     Active Substance: FLUOROURACIL
     Dosage: 2600 MG OVER 46H
     Dates: start: 20240111, end: 20240111
  10. FLUOROURACIL [Suspect]
     Active Substance: FLUOROURACIL
     Dosage: 650 MG IN 10MIN THEN 3900 MG IN 46H
     Dates: start: 20230816, end: 20230816
  11. FLUOROURACIL [Suspect]
     Active Substance: FLUOROURACIL
     Dosage: 2230 MG OVER 46H
     Dates: start: 20240219, end: 20240219
  12. FLUOROURACIL [Suspect]
     Active Substance: FLUOROURACIL
     Dosage: 2250 MG OVER 46 H
     Dates: start: 20240125, end: 20240125
  13. FLUOROURACIL [Suspect]
     Active Substance: FLUOROURACIL
     Dosage: 2700 MG OVER 46H
     Dates: start: 20230906, end: 20230906
  14. FLUOROURACIL [Suspect]
     Active Substance: FLUOROURACIL
     Dosage: 2600 MG OVER 46 H
     Dates: start: 20231018, end: 20231018
  15. VECTIBIX [Suspect]
     Active Substance: PANITUMUMAB
     Indication: Adenocarcinoma gastric
     Dosage: C6 : 250 MG OVER 1H
     Route: 042
     Dates: start: 20240219, end: 20240219
  16. VECTIBIX [Suspect]
     Active Substance: PANITUMUMAB
     Dosage: 335 MG OVER 1H
     Route: 042
     Dates: start: 20231004, end: 20231004
  17. VECTIBIX [Suspect]
     Active Substance: PANITUMUMAB
     Dosage: 335 MG OVER 1H
     Route: 042
     Dates: start: 20230920, end: 20230920
  18. VECTIBIX [Suspect]
     Active Substance: PANITUMUMAB
     Dosage: 320 MG OVER 1H
     Route: 042
     Dates: start: 20240111, end: 20240111
  19. VECTIBIX [Suspect]
     Active Substance: PANITUMUMAB
     Dosage: 320 MG OVER 1H
     Route: 042
     Dates: start: 20240125, end: 20240125
  20. VECTIBIX [Suspect]
     Active Substance: PANITUMUMAB
     Dosage: 320 MG OVER 1H
     Route: 042
     Dates: start: 20231018, end: 20231018

REACTIONS (3)
  - Rash maculo-papular [Recovering/Resolving]
  - Acute kidney injury [Recovered/Resolved]
  - Eosinophilia [Recovered/Resolved]

NARRATIVE: CASE EVENT DATE: 20240219
